FAERS Safety Report 5355854-1 (Version None)
Quarter: 2007Q2

REPORT INFORMATION
  Report Type: 
  Country: None (occurrence: None)
  Receive Date: 20070611
  Receipt Date: 20070611
  Transmission Date: 20071010
  Serious: Yes (Death, Hospitalization)
  Sender: FDA-Public Use
  Company Number: None

PATIENT
  Sex: Female
  Weight: 67 kg

DRUGS (2)
  1. TEMOZOLOMIDE [Suspect]
     Dosage: 3120 MG
  2. RESPRIM [Concomitant]

REACTIONS (8)
  - ASTHENIA [None]
  - CHILLS [None]
  - LEUKOPENIA [None]
  - NEUTROPENIA [None]
  - PYREXIA [None]
  - THROMBOCYTOPENIA [None]
  - TRANSFUSION REACTION [None]
  - TUMOUR HAEMORRHAGE [None]
